FAERS Safety Report 5493679-7 (Version None)
Quarter: 2007Q4

REPORT INFORMATION
  Report Type: 
  Country: None (occurrence: None)
  Receive Date: 20071015
  Receipt Date: 20070831
  Transmission Date: 20080405
  Serious: No
  Sender: FDA-Public Use
  Company Number: 2007SP003063

PATIENT
  Age: 70 Year
  Sex: Female
  Weight: 84.369 kg

DRUGS (8)
  1. LUNESTA [Suspect]
     Indication: INSOMNIA
     Dosage: 2 MG; HS; ORAL
     Route: 048
     Dates: start: 20070829, end: 20070830
  2. LISINOPRIL AND HYDROCHLOROTHIAZIDE [Concomitant]
  3. SYNTHROID [Concomitant]
  4. ULTRACET [Concomitant]
  5. LYRICA [Concomitant]
  6. PANTOPRAZOLE SODIUM [Concomitant]
  7. CALCIUM [Concomitant]
  8. FISH OIL [Concomitant]

REACTIONS (1)
  - DYSGEUSIA [None]
